FAERS Safety Report 18684100 (Version 1)
Quarter: 2020Q4

REPORT INFORMATION
  Report Type: Report from Study
  Country: US (occurrence: US)
  Receive Date: 20201230
  Receipt Date: 20201230
  Transmission Date: 20210114
  Serious: Yes (Hospitalization)
  Sender: FDA-Public Use
  Company Number: US-ALXN-A202019185

PATIENT
  Sex: Female

DRUGS (1)
  1. SOLIRIS [Suspect]
     Active Substance: ECULIZUMAB
     Indication: ATYPICAL HAEMOLYTIC URAEMIC SYNDROME
     Dosage: UNK
     Route: 065

REACTIONS (8)
  - Pain [Unknown]
  - Headache [Unknown]
  - COVID-19 [Unknown]
  - Ageusia [Unknown]
  - Blood pressure increased [Unknown]
  - Anosmia [Unknown]
  - SARS-CoV-2 test positive [Unknown]
  - Fatigue [Unknown]

NARRATIVE: CASE EVENT DATE: 202011
